FAERS Safety Report 24128083 (Version 2)
Quarter: 2024Q3

REPORT INFORMATION
  Report Type: Spontaneous
  Country: DE (occurrence: DE)
  Receive Date: 20240723
  Receipt Date: 20240806
  Transmission Date: 20241016
  Serious: Yes (Hospitalization, Other)
  Sender: SANDOZ
  Company Number: DE-BAXTER-2024BAX021324

PATIENT
  Age: 17 Year
  Sex: Female
  Weight: 63.9 kg

DRUGS (9)
  1. CYCLOPHOSPHAMIDE [Suspect]
     Active Substance: CYCLOPHOSPHAMIDE
     Indication: Chemotherapy
     Dosage: 358 MG, TWICE DAILY
     Route: 042
     Dates: start: 20240523, end: 20240525
  2. CYTARABINE [Suspect]
     Active Substance: CYTARABINE
     Indication: Chemotherapy
     Dosage: 3580 MG, TWICE
     Route: 042
     Dates: start: 20240526, end: 20240526
  3. DEXAMETHASONE [Suspect]
     Active Substance: DEXAMETHASONE
     Indication: Chemotherapy
     Dosage: 9 MG, TWICE DAILY(SOLUTION FOR INFUSION)
     Route: 042
     Dates: start: 20240522, end: 20240527
  4. INOTUZUMAB OZOGAMICIN [Suspect]
     Active Substance: INOTUZUMAB OZOGAMICIN
     Indication: Leukaemia recurrent
     Dosage: 0.94 MG, WEEKLY
     Route: 042
     Dates: start: 20240422, end: 20240506
  5. METHOTREXATE [Suspect]
     Active Substance: METHOTREXATE
     Indication: Chemotherapy
     Dosage: 1790 MG, ONCE, ONGOING
     Route: 042
     Dates: start: 20240522, end: 20240524
  6. PEGASPARGASE [Suspect]
     Active Substance: PEGASPARGASE
     Indication: Chemotherapy
     Dosage: 1790, SINGLE
     Route: 042
     Dates: start: 20240527, end: 20240527
  7. VINCRISTINE SULFATE [Suspect]
     Active Substance: VINCRISTINE SULFATE
     Indication: Chemotherapy
     Dosage: 2 MG, D1 AND D6
     Route: 042
     Dates: start: 20240522, end: 20240527
  8. AMBISOME [Concomitant]
     Active Substance: AMPHOTERICIN B
     Indication: Antifungal prophylaxis
     Dosage: UNK, ONGOING
     Route: 042
  9. COTRIM [Concomitant]
     Active Substance: SULFAMETHOXAZOLE\TRIMETHOPRIM
     Indication: Infection prophylaxis
     Dosage: UNK, ONGOING
     Route: 048

REACTIONS (2)
  - Bone marrow failure [Recovered/Resolved]
  - Mucosal inflammation [Recovered/Resolved]

NARRATIVE: CASE EVENT DATE: 20240531
